FAERS Safety Report 9467125 (Version 2)
Quarter: 2013Q3

REPORT INFORMATION
  Report Type: Spontaneous
  Country: NL (occurrence: NL)
  Receive Date: 20130820
  Receipt Date: 20130820
  Transmission Date: 20140515
  Serious: Yes (Hospitalization)
  Sender: FDA-Public Use
  Company Number: NL-B.I. PHARMACEUTICALS,INC./RIDGEFIELD-2013-NL-00369NL

PATIENT
  Sex: Male
  Weight: 76 kg

DRUGS (4)
  1. PRADAXA [Suspect]
     Indication: ATRIAL FIBRILLATION
     Dosage: 220 MG
  2. ATENOLOL [Concomitant]
  3. CHLOORTALIDON [Concomitant]
  4. LACIDIPINE [Concomitant]

REACTIONS (3)
  - Urinary bladder haemorrhage [Recovered/Resolved]
  - Skin haemorrhage [Recovered/Resolved]
  - Vasculitis [Recovered/Resolved]
